FAERS Safety Report 8997895 (Version 2)
Quarter: 2013Q1

REPORT INFORMATION
  Report Type: Spontaneous
  Country: FR (occurrence: FR)
  Receive Date: 20130104
  Receipt Date: 20130227
  Transmission Date: 20140127
  Serious: Yes (Hospitalization)
  Sender: FDA-Public Use
  Company Number: FR-ROCHE-1176615

PATIENT
  Age: 64 Year
  Sex: Female
  Weight: 74 kg

DRUGS (5)
  1. MABTHERA [Suspect]
     Indication: PRODUCT USED FOR UNKNOWN INDICATION
     Route: 042
     Dates: start: 20091114
  2. MABTHERA [Suspect]
     Route: 042
     Dates: start: 20091120
  3. MABTHERA [Suspect]
     Route: 042
     Dates: start: 20121206, end: 20121206
  4. SOLU-MEDROL [Concomitant]
     Route: 065
  5. CYCLOPHOSPHAMIDE [Concomitant]
     Route: 065
     Dates: start: 2005, end: 2006

REACTIONS (5)
  - Back pain [Recovered/Resolved]
  - Hypertension [Recovered/Resolved]
  - Rash [Recovered/Resolved]
  - Hyperhidrosis [Recovered/Resolved]
  - Chills [Recovered/Resolved]
